FAERS Safety Report 13993307 (Version 1)
Quarter: 2017Q3

REPORT INFORMATION
  Report Type: Spontaneous
  Country: IT (occurrence: IT)
  Receive Date: 20170920
  Receipt Date: 20170920
  Transmission Date: 20171128
  Serious: Yes (Death, Other)
  Sender: FDA-Public Use
  Company Number: IT-BAUSCH-BL-2017-027492

PATIENT
  Age: 41 Year
  Sex: Male

DRUGS (1)
  1. PARACETAMOL CODEINE [Suspect]
     Active Substance: ACETAMINOPHEN\CODEINE PHOSPHATE
     Indication: PRODUCT USED FOR UNKNOWN INDICATION
     Route: 065

REACTIONS (4)
  - Toxicity to various agents [Fatal]
  - Visceral congestion [Fatal]
  - Pulmonary oedema [Fatal]
  - Brain oedema [Fatal]
